FAERS Safety Report 5268373-8 (Version None)
Quarter: 2007Q1

REPORT INFORMATION
  Report Type: 
  Country: None (occurrence: None)
  Receive Date: 20070313
  Receipt Date: 20070305
  Transmission Date: 20070707
  Serious: Yes (Hospitalization)
  Sender: FDA-Public Use
  Company Number: 234397

PATIENT
  Age: 80 Year
  Sex: Male

DRUGS (3)
  1. ACTIVACIN  (ALTEPLASE) PWDR + SOLVENT, INFUSION SOLN [Suspect]
     Indication: CEREBRAL ARTERY EMBOLISM
     Dosage: 39 MG, SINGLE, INTRAVENOUS
     Route: 042
     Dates: start: 20060620, end: 20060620
  2. HEPARIN SODIUM [Concomitant]
  3. RADICUT (EDARAVONE) [Concomitant]

REACTIONS (2)
  - CHOLECYSTITIS ACUTE [None]
  - CHOLELITHIASIS [None]
